FAERS Safety Report 18749702 (Version 2)
Quarter: 2021Q1

REPORT INFORMATION
  Report Type: Spontaneous
  Country: IT (occurrence: IT)
  Receive Date: 20210117
  Receipt Date: 20210122
  Transmission Date: 20210419
  Serious: Yes (Life-Threatening)
  Sender: FDA-Public Use
  Company Number: IT-TEVA-2021-IT-1868683

PATIENT
  Age: 72 Year
  Sex: Female

DRUGS (2)
  1. CARBOPLATINO TEVA 10 MG/ML [Suspect]
     Active Substance: CARBOPLATIN
     Indication: OVARIAN CANCER
     Dosage: 270MILLIGRAM
     Route: 042
     Dates: start: 20201119, end: 20201119
  2. GEMCITABINE. [Concomitant]
     Active Substance: GEMCITABINE
     Dosage: 1000MILLIGRAM
     Route: 042
     Dates: start: 20201119, end: 20201119

REACTIONS (5)
  - Palmar-plantar erythrodysaesthesia syndrome [Recovered/Resolved]
  - Hyperhidrosis [Recovered/Resolved]
  - Confusional state [Recovered/Resolved]
  - Agitation [Recovered/Resolved]
  - Chest discomfort [Recovered/Resolved]

NARRATIVE: CASE EVENT DATE: 20201119
